FAERS Safety Report 16184705 (Version 2)
Quarter: 2020Q2

REPORT INFORMATION
  Report Type: Spontaneous
  Country: US (occurrence: US)
  Receive Date: 20190411
  Receipt Date: 20200622
  Transmission Date: 20200713
  Serious: No
  Sender: FDA-Public Use
  Company Number: US-PFIZER INC-2019152442

PATIENT
  Age: 51 Year
  Sex: Female
  Weight: 62.13 kg

DRUGS (1)
  1. XELJANZ XR [Suspect]
     Active Substance: TOFACITINIB CITRATE
     Indication: RHEUMATOID ARTHRITIS
     Dosage: 11 MG, DAILY
     Route: 048
     Dates: start: 20190301

REACTIONS (7)
  - Pain [Unknown]
  - Nasopharyngitis [Unknown]
  - Migraine [Unknown]
  - Gastrointestinal disorder [Unknown]
  - Headache [Unknown]
  - Oropharyngeal pain [Unknown]
  - Sinusitis [Unknown]
